FAERS Safety Report 7104991-X (Version None)
Quarter: 2010Q4

REPORT INFORMATION
  Report Type: 
  Country: None (occurrence: None)
  Receive Date: 20101116
  Receipt Date: 20101105
  Transmission Date: 20110411
  Serious: Yes (Other)
  Sender: FDA-Public Use
  Company Number: PHHY2010BR65433

PATIENT
  Sex: Female

DRUGS (2)
  1. TRILEPTAL [Suspect]
     Indication: INSOMNIA
     Dosage: 300 MG, DAILY (ONE TABLET AT NIGHT)
     Route: 048
     Dates: start: 20100925
  2. VENLAFAXINE [Suspect]
     Indication: DEPRESSION
     Dosage: 300 MG, QD (ONE TABLET DURING BREAKFAST)
     Dates: start: 20100926

REACTIONS (11)
  - ANURIA [None]
  - CONSTIPATION [None]
  - DECREASED APPETITE [None]
  - DIZZINESS [None]
  - DRY MOUTH [None]
  - DYSURIA [None]
  - FLUID INTAKE REDUCED [None]
  - INSOMNIA [None]
  - LIP DRY [None]
  - NASOPHARYNGITIS [None]
  - TREMOR [None]
